FAERS Safety Report 13792006 (Version 1)
Quarter: 2017Q3

REPORT INFORMATION
  Report Type: Spontaneous
  Country: US (occurrence: US)
  Receive Date: 20170725
  Receipt Date: 20170725
  Transmission Date: 20171127
  Serious: No
  Sender: FDA-Public Use
  Company Number: US-ROCHE-1945185

PATIENT
  Sex: Female
  Weight: 51.3 kg

DRUGS (2)
  1. OCREVUS [Suspect]
     Active Substance: OCRELIZUMAB
     Indication: MULTIPLE SCLEROSIS
     Dosage: INFUSION RATE TWO AND HALF HOURS, ONGOING: NO
     Route: 065
  2. OCREVUS [Suspect]
     Active Substance: OCRELIZUMAB
     Dosage: INFUSION RATE DELAYED TO 3 HOURS TEN MINUTES
     Route: 065

REACTIONS (3)
  - Burning sensation [Unknown]
  - Ill-defined disorder [Recovered/Resolved]
  - Peripheral swelling [Recovered/Resolved]
